FAERS Safety Report 4633471-6 (Version None)
Quarter: 2005Q2

REPORT INFORMATION
  Report Type: 
  Country: None (occurrence: None)
  Receive Date: 20050412
  Receipt Date: 20050329
  Transmission Date: 20051028
  Serious: Yes (Death, Hospitalization)
  Sender: FDA-Public Use
  Company Number: USA-2005-0019550

PATIENT
  Age: 33 Year
  Sex: Male
  Weight: 81.6 kg

DRUGS (39)
  1. OXYCONTIN [Suspect]
     Indication: PAIN
     Dates: start: 20010529
  2. MS CONTIN [Suspect]
     Indication: PAIN
     Dosage: 30 MG, Q12H, ORAL
     Route: 048
     Dates: start: 19990316
  3. MS CONTIN [Concomitant]
     Indication: PAIN
     Dosage: 7.5 MG, Q4H, ORAL
     Route: 048
     Dates: start: 19990316
  4. OXYCODONE AND ACETAMINOPHEN [Concomitant]
  5. DEMEROL [Concomitant]
  6. PEPCID [Concomitant]
  7. PROZAC [Concomitant]
  8. HALDOL (HAOPERIDOL) [Concomitant]
  9. TYLENOL (CAPLET) [Concomitant]
  10. DEPAKOTE [Concomitant]
  11. IBUPROFEN [Concomitant]
  12. LITHONATE [Concomitant]
  13. ETHANOL [Concomitant]
  14. FOLATE SODIUM (FOLATE SODIUM) [Concomitant]
  15. PROMETHAZINE [Concomitant]
  16. LABETALOL HYDROCHLORIDE [Concomitant]
  17. COLCHICINE (COLCHICINE) [Concomitant]
  18. PANCRELIPASE (PANCRELIPASE) [Concomitant]
  19. CHLORDIAZEPOXIDE [Concomitant]
  20. DIAZEPAM [Concomitant]
  21. ATIVAN [Concomitant]
  22. AMITRIPTYLAINE HYDROCHLORIDE (AMITRIPTYLINE HYDROCHLORIDE) [Concomitant]
  23. AMBIEN [Concomitant]
  24. ULTRAM [Concomitant]
  25. CYCLOBENZAPRINE HCL [Concomitant]
  26. DIFLUNISAL [Concomitant]
  27. PROPANOLOL (PROPANOLOL) [Concomitant]
  28. MELLARIL [Concomitant]
  29. ZANTAC [Concomitant]
  30. PRILOSEC [Concomitant]
  31. IMITREX ^GLAXO^ (SUMATRIPTAN) [Concomitant]
  32. NAPROXEN SODIUM [Concomitant]
  33. BACITRACIN/NEOMYCIN/POLYMYXIN B (NEOMYCIN) [Concomitant]
  34. ZINC (SINC) [Concomitant]
  35. THIAMINE HCL [Concomitant]
  36. COMPAZINE [Concomitant]
  37. TRABXENE (CLORAZEPATE DIOTASSIUM) [Concomitant]
  38. TORADOL [Concomitant]
  39. NASONEX [Concomitant]

REACTIONS (36)
  - ACCIDENTAL DEATH [None]
  - ACCIDENTAL OVERDOSE [None]
  - ACUTE ABDOMEN [None]
  - ALCOHOL POISONING [None]
  - ALCOHOLISM [None]
  - AMMONIA INCREASED [None]
  - CHEST WALL PAIN [None]
  - CLAVICLE FRACTURE [None]
  - COMA [None]
  - CONDITION AGGRAVATED [None]
  - CONVULSION [None]
  - DEPRESSION [None]
  - DISEASE RECURRENCE [None]
  - DRUG DEPENDENCE [None]
  - DRUG HYPERSENSITIVITY [None]
  - DRUG INTOLERANCE [None]
  - DRUG TOLERANCE DECREASED [None]
  - DRUG TOXICITY [None]
  - ECONOMIC PROBLEM [None]
  - EMOTIONAL DISORDER [None]
  - FALL [None]
  - GASTROINTESTINAL DISORDER [None]
  - GOUT [None]
  - HAND FRACTURE [None]
  - HEPATIC ENCEPHALOPATHY [None]
  - HEPATIC FIBROSIS [None]
  - HYPERTENSION [None]
  - HYPERTENSIVE HEART DISEASE [None]
  - INTENTIONAL MISUSE [None]
  - MENTAL DISORDER [None]
  - OVERDOSE [None]
  - PANCREATITIS ACUTE [None]
  - PRURITUS [None]
  - ROAD TRAFFIC ACCIDENT [None]
  - SELF INJURIOUS BEHAVIOUR [None]
  - SUICIDE ATTEMPT [None]
